FAERS Safety Report 5847221-9 (Version None)
Quarter: 2008Q3

REPORT INFORMATION
  Report Type: 
  Country: None (occurrence: None)
  Receive Date: 20080815
  Receipt Date: 20080804
  Transmission Date: 20090109
  Serious: Yes (Hospitalization)
  Sender: FDA-Public Use
  Company Number: DE-BOEHRINGER INGELHEIM GMBH, GERMANY-2008-BP-08586YA

PATIENT
  Age: 66 Year
  Sex: Male
  Weight: 88 kg

DRUGS (5)
  1. TAMSULOSIN OCAS [Suspect]
     Indication: PROSTATISM
     Route: 048
     Dates: start: 20080425
  2. SOLIFENACIN (TAMSULOSIN REFERENCE) [Suspect]
     Indication: PROSTATISM
     Route: 048
     Dates: start: 20080425
  3. ENALAPRIL [Concomitant]
     Indication: HYPERTENSION
     Dates: start: 20010601
  4. AMLOPIN [Concomitant]
     Indication: HYPERTENSION
     Dates: start: 20070401
  5. RABEPRAZOLE SODIUM [Concomitant]
     Indication: HYPERCHLORHYDRIA
     Dates: start: 20071101

REACTIONS (3)
  - CONSTIPATION [None]
  - URETHRAL PAIN [None]
  - URINARY RETENTION [None]
